FAERS Safety Report 17633416 (Version 6)
Quarter: 2025Q4

REPORT INFORMATION
  Report Type: Spontaneous
  Country: GB (occurrence: GB)
  Receive Date: 20200406
  Receipt Date: 20251008
  Transmission Date: 20260118
  Serious: Yes (Hospitalization, Other)
  Sender: MYLAN
  Company Number: GB-MYLANLABS-2020M1034551

PATIENT
  Age: 35 Year
  Sex: Male

DRUGS (28)
  1. CLOZARIL [Suspect]
     Active Substance: CLOZAPINE
     Indication: Schizophrenia
     Dosage: UNK
     Dates: start: 20140604, end: 20200329
  2. CLOZARIL [Suspect]
     Active Substance: CLOZAPINE
     Dosage: UNK
     Dates: start: 20140604, end: 20200329
  3. CLOZARIL [Suspect]
     Active Substance: CLOZAPINE
     Dosage: UNK
     Route: 048
     Dates: start: 20140604, end: 20200329
  4. CLOZARIL [Suspect]
     Active Substance: CLOZAPINE
     Dosage: UNK
     Route: 048
     Dates: start: 20140604, end: 20200329
  5. CLOZARIL [Suspect]
     Active Substance: CLOZAPINE
     Dosage: UNK
  6. CLOZARIL [Suspect]
     Active Substance: CLOZAPINE
     Dosage: UNK
  7. CLOZARIL [Suspect]
     Active Substance: CLOZAPINE
     Dosage: UNK
     Route: 048
  8. CLOZARIL [Suspect]
     Active Substance: CLOZAPINE
     Dosage: UNK
     Route: 048
  9. OLANZAPINE [Suspect]
     Active Substance: OLANZAPINE
     Indication: Schizophrenia
     Dosage: UNK
  10. OLANZAPINE [Suspect]
     Active Substance: OLANZAPINE
     Dosage: UNK
     Route: 065
  11. OLANZAPINE [Suspect]
     Active Substance: OLANZAPINE
     Dosage: UNK
     Route: 065
  12. OLANZAPINE [Suspect]
     Active Substance: OLANZAPINE
     Dosage: UNK
  13. ARIPIPRAZOLE [Suspect]
     Active Substance: ARIPIPRAZOLE
     Indication: Product used for unknown indication
     Dosage: UNK
  14. ARIPIPRAZOLE [Suspect]
     Active Substance: ARIPIPRAZOLE
     Dosage: UNK
     Route: 065
  15. ARIPIPRAZOLE [Suspect]
     Active Substance: ARIPIPRAZOLE
     Dosage: UNK
     Route: 065
  16. ARIPIPRAZOLE [Suspect]
     Active Substance: ARIPIPRAZOLE
     Dosage: UNK
  17. LURASIDONE [Suspect]
     Active Substance: LURASIDONE
     Indication: Product used for unknown indication
     Dosage: UNK (STOPPED AROUND OCT 2024)
  18. LURASIDONE [Suspect]
     Active Substance: LURASIDONE
     Dosage: UNK (STOPPED AROUND OCT 2024)
     Route: 065
  19. LURASIDONE [Suspect]
     Active Substance: LURASIDONE
     Dosage: UNK (STOPPED AROUND OCT 2024)
     Route: 065
  20. LURASIDONE [Suspect]
     Active Substance: LURASIDONE
     Dosage: UNK (STOPPED AROUND OCT 2024)
  21. VALPROATE [Concomitant]
     Active Substance: VALPROIC ACID
     Dosage: UNK
  22. VALPROATE [Concomitant]
     Active Substance: VALPROIC ACID
     Dosage: UNK
     Route: 065
  23. VALPROATE [Concomitant]
     Active Substance: VALPROIC ACID
     Dosage: UNK
     Route: 065
  24. VALPROATE [Concomitant]
     Active Substance: VALPROIC ACID
     Dosage: UNK
  25. LITHIUM [Concomitant]
     Active Substance: LITHIUM
     Dosage: UNK
  26. LITHIUM [Concomitant]
     Active Substance: LITHIUM
     Dosage: UNK
     Route: 065
  27. LITHIUM [Concomitant]
     Active Substance: LITHIUM
     Dosage: UNK
     Route: 065
  28. LITHIUM [Concomitant]
     Active Substance: LITHIUM
     Dosage: UNK

REACTIONS (10)
  - Hospitalisation [Unknown]
  - Coronavirus infection [Unknown]
  - Schizophrenia [Unknown]
  - Neutropenia [Recovered/Resolved]
  - Pneumonia [Unknown]
  - White blood cell count decreased [Not Recovered/Not Resolved]
  - Eosinophil count decreased [Unknown]
  - Platelet count decreased [Recovered/Resolved]
  - Drug ineffective [Unknown]
  - Off label use [Unknown]

NARRATIVE: CASE EVENT DATE: 20200301
